FAERS Safety Report 11090286 (Version 1)
Quarter: 2015Q2

REPORT INFORMATION
  Report Type: Spontaneous
  Country: IR (occurrence: None)
  Receive Date: 20150501
  Receipt Date: 20150501
  Transmission Date: 20150821
  Serious: Yes (Other)
  Sender: FDA-Public Use
  Company Number: IR-2015VAL000278

PATIENT
  Age: 43 Year
  Sex: Male

DRUGS (5)
  1. PERPHENAZINE. [Concomitant]
     Active Substance: PERPHENAZINE
  2. VALPROAT (VALPROATE SODIUM) [Concomitant]
  3. BIPERIDEN [Concomitant]
     Active Substance: BIPERIDEN
  4. CHLORPROMAZINE [Concomitant]
     Active Substance: CHLORPROMAZINE
  5. CARBAMAZEPINE. [Suspect]
     Active Substance: CARBAMAZEPINE
     Indication: BIPOLAR DISORDER
     Dosage: 1200 MG, DAILY

REACTIONS (6)
  - Euphoric mood [None]
  - Dizziness [None]
  - Drug abuse [None]
  - Abnormal dreams [None]
  - Somnolence [None]
  - Sleep talking [None]
